FAERS Safety Report 22235359 (Version 1)
Quarter: 2023Q2

REPORT INFORMATION
  Report Type: Spontaneous
  Country: JP (occurrence: JP)
  Receive Date: 20230420
  Receipt Date: 20230420
  Transmission Date: 20230722
  Serious: Yes (Hospitalization)
  Sender: FDA-Public Use
  Company Number: JP-BAYER-2023A038598

PATIENT
  Age: 82 Year
  Sex: Male

DRUGS (2)
  1. ADEMPAS [Suspect]
     Active Substance: RIOCIGUAT
     Dosage: UNK
     Route: 048
  2. ADEMPAS [Suspect]
     Active Substance: RIOCIGUAT
     Dosage: DAILY DOSE 3.75 MG
     Route: 048
     Dates: start: 20230323

REACTIONS (5)
  - Cardiac failure [None]
  - Pulmonary hypertension [None]
  - Product prescribing issue [None]
  - Wrong technique in product usage process [None]
  - Product dispensing issue [None]

NARRATIVE: CASE EVENT DATE: 20230301
